FAERS Safety Report 15927227 (Version 2)
Quarter: 2019Q1

REPORT INFORMATION
  Report Type: Spontaneous
  Country: US (occurrence: US)
  Receive Date: 20190205
  Receipt Date: 20190219
  Transmission Date: 20190417
  Serious: No
  Sender: FDA-Public Use
  Company Number: US-ALLERGAN-1849716US

PATIENT
  Sex: Male

DRUGS (8)
  1. OXYCODONE [Concomitant]
     Active Substance: OXYCODONE
     Indication: PAIN
     Dosage: UNK
     Route: 048
  2. ANTIDEPRESSANTS [Concomitant]
     Active Substance: UNSPECIFIED INGREDIENT
  3. BOTOX [Suspect]
     Active Substance: ONABOTULINUMTOXINA
     Indication: BLEPHAROSPASM
     Dosage: 100 UNITS, SINGLE
     Route: 030
  4. VALIUM [Concomitant]
     Active Substance: DIAZEPAM
     Indication: MUSCLE RELAXANT THERAPY
     Dosage: UNK
     Route: 048
  5. SSRI [Concomitant]
     Active Substance: UNSPECIFIED INGREDIENT
  6. ACETAMINOPHEN. [Concomitant]
     Active Substance: ACETAMINOPHEN
     Dosage: UNK
     Route: 048
  7. OPIOIDS [Concomitant]
     Active Substance: UNSPECIFIED INGREDIENT
  8. XANAX [Concomitant]
     Active Substance: ALPRAZOLAM
     Indication: SLEEP DISORDER
     Dosage: UNK
     Route: 048

REACTIONS (10)
  - Dyskinesia [Unknown]
  - Headache [Unknown]
  - Speech disorder [Unknown]
  - Drug ineffective [Unknown]
  - Insomnia [Unknown]
  - Dysphagia [Unknown]
  - Eye disorder [Unknown]
  - Pain [Unknown]
  - Depression [Not Recovered/Not Resolved]
  - Incorrect dose administered [Unknown]
